FAERS Safety Report 21595748 (Version 2)
Quarter: 2022Q4

REPORT INFORMATION
  Report Type: Spontaneous
  Country: US (occurrence: US)
  Receive Date: 20221115
  Receipt Date: 20221216
  Transmission Date: 20230113
  Serious: No
  Sender: FDA-Public Use
  Company Number: US-FDC-2022USSPO00115

PATIENT
  Age: 80 Year
  Sex: Female
  Weight: 91 kg

DRUGS (5)
  1. TIMOLOL MALEATE [Suspect]
     Active Substance: TIMOLOL MALEATE
     Indication: Glaucoma
     Route: 047
     Dates: start: 20221030
  2. Lisinoprii [Concomitant]
     Indication: Product used for unknown indication
     Route: 065
  3. ATENOLOL [Concomitant]
     Active Substance: ATENOLOL
     Indication: Blood pressure measurement
     Route: 065
  4. ATORVASTATIN [Concomitant]
     Active Substance: ATORVASTATIN
     Indication: Blood cholesterol increased
     Route: 065
  5. METFORMIN [Concomitant]
     Active Substance: METFORMIN HYDROCHLORIDE
     Route: 065

REACTIONS (2)
  - Product dose omission issue [Unknown]
  - Product packaging quantity issue [Unknown]

NARRATIVE: CASE EVENT DATE: 20221001
